FAERS Safety Report 22240449 (Version 4)
Quarter: 2023Q2

REPORT INFORMATION
  Report Type: Spontaneous
  Country: US (occurrence: US)
  Receive Date: 20230421
  Receipt Date: 20230427
  Transmission Date: 20230722
  Serious: Yes (Life-Threatening, Hospitalization, Other)
  Sender: FDA-Public Use
  Company Number: US-PFIZER INC-PV202300072268

PATIENT
  Age: 66 Year
  Sex: Female

DRUGS (19)
  1. METHOTREXATE SODIUM [Suspect]
     Active Substance: METHOTREXATE SODIUM
     Indication: Neoplasm
     Dosage: DAY 8, EVERY TWO WEEKS
  2. METHOTREXATE SODIUM [Suspect]
     Active Substance: METHOTREXATE SODIUM
     Indication: Neoplasm
  3. METHOTREXATE SODIUM [Suspect]
     Active Substance: METHOTREXATE SODIUM
     Indication: Neoplasm
  4. ETOPOSIDE [Suspect]
     Active Substance: ETOPOSIDE
     Indication: Neoplasm
     Dosage: DAY 1 AND 8, EVERY TWO WEEKS
  5. ETOPOSIDE [Suspect]
     Active Substance: ETOPOSIDE
     Indication: Neoplasm
  6. ETOPOSIDE [Suspect]
     Active Substance: ETOPOSIDE
     Indication: Neoplasm
  7. ETOPOSIDE [Suspect]
     Active Substance: ETOPOSIDE
     Indication: Gestational trophoblastic tumour
  8. ETOPOSIDE [Suspect]
     Active Substance: ETOPOSIDE
     Indication: Placental neoplasm
  9. CISPLATIN [Suspect]
     Active Substance: CISPLATIN
     Indication: Neoplasm
     Dosage: DAY 1, EVERY TWO WEEKS
  10. CISPLATIN [Suspect]
     Active Substance: CISPLATIN
     Indication: Neoplasm
  11. CISPLATIN [Suspect]
     Active Substance: CISPLATIN
     Indication: Neoplasm
  12. CISPLATIN [Suspect]
     Active Substance: CISPLATIN
     Indication: Placental neoplasm
  13. CISPLATIN [Suspect]
     Active Substance: CISPLATIN
     Indication: Gestational trophoblastic tumour
  14. ACTINOMYCIN D [Suspect]
     Active Substance: DACTINOMYCIN
     Indication: Neoplasm
     Dosage: DAY 8, EVERY TWO WEEKS
  15. ACTINOMYCIN D [Suspect]
     Active Substance: DACTINOMYCIN
     Indication: Neoplasm
  16. ACTINOMYCIN D [Suspect]
     Active Substance: DACTINOMYCIN
     Indication: Neoplasm
  17. PEMBROLIZUMAB [Concomitant]
     Active Substance: PEMBROLIZUMAB
     Indication: Neoplasm
     Dosage: INFUSION, 5 CYCLES
  18. PEMBROLIZUMAB [Concomitant]
     Active Substance: PEMBROLIZUMAB
     Indication: Neoplasm
  19. PEMBROLIZUMAB [Concomitant]
     Active Substance: PEMBROLIZUMAB
     Indication: Neoplasm

REACTIONS (7)
  - Sepsis [Recovered/Resolved]
  - Neutropenia [Recovered/Resolved]
  - Thrombocytopenia [Recovered/Resolved]
  - Mucosal inflammation [Recovered/Resolved]
  - Anaemia [Recovered/Resolved]
  - Febrile neutropenia [Recovered/Resolved]
  - Stomatitis [Recovered/Resolved]
